FAERS Safety Report 22253302 (Version 1)
Quarter: 2023Q2

REPORT INFORMATION
  Report Type: Spontaneous
  Country: US (occurrence: US)
  Receive Date: 20230426
  Receipt Date: 20230426
  Transmission Date: 20230722
  Serious: Yes (Hospitalization, Other)
  Sender: FDA-Public Use
  Company Number: US-002147023-NVSC2023US091714

PATIENT
  Age: 0 Year
  Sex: Male
  Weight: 1.829 kg

DRUGS (4)
  1. RITALIN [Suspect]
     Active Substance: METHYLPHENIDATE HYDROCHLORIDE
     Indication: Foetal exposure during pregnancy
     Dosage: MATERNAL EXPOSURE: 20 MG
     Route: 064
  2. METHYLPHENIDATE [Suspect]
     Active Substance: METHYLPHENIDATE
     Indication: Foetal exposure during pregnancy
     Dosage: MATERNAL EXPOSURE: 20 MG, QD FROM OCT 2021
     Route: 064
  3. TYLENOL [Concomitant]
     Active Substance: ACETAMINOPHEN
     Indication: Foetal exposure during pregnancy
     Dosage: MATERNAL EXPOSURE, UNK
     Route: 064
  4. ALBUTEROL [Concomitant]
     Active Substance: ALBUTEROL
     Indication: Foetal exposure during pregnancy
     Dosage: MATERNAL EXPOSURE
     Route: 064

REACTIONS (1)
  - Premature baby [Not Recovered/Not Resolved]

NARRATIVE: CASE EVENT DATE: 20230209
